FAERS Safety Report 5622924-X (Version None)
Quarter: 2008Q1

REPORT INFORMATION
  Report Type: 
  Country: None (occurrence: None)
  Receive Date: 20080212
  Receipt Date: 20080206
  Transmission Date: 20080703
  Serious: Yes (Other)
  Sender: FDA-Public Use
  Company Number: PHFR2008GB00803

PATIENT

DRUGS (1)
  1. MELLARIL [Suspect]
     Route: 065

REACTIONS (1)
  - KNEE OPERATION [None]
